FAERS Safety Report 4713597-9 (Version None)
Quarter: 2005Q3

REPORT INFORMATION
  Report Type: 
  Country: None (occurrence: None)
  Receive Date: 20050712
  Receipt Date: 20050628
  Transmission Date: 20060218
  Serious: Yes (Hospitalization, Disabling)
  Sender: FDA-Public Use
  Company Number: 2005-00118

PATIENT
  Age: 73 Year
  Sex: Male

DRUGS (12)
  1. IMMUCYST [Suspect]
     Indication: BLADDER CANCER
     Dosage: (81.0) I.VES.,BLADDER
     Dates: start: 20040412, end: 20040527
  2. NAFTOPIDIL [Concomitant]
  3. CEFDINIR [Concomitant]
  4. LEVOFLOXACIN [Concomitant]
  5. TEPRENONE [Concomitant]
  6. TAMSULOSIN HYDROCHLORIDE [Concomitant]
  7. CEFCAPENE PIVOXIL HYDROCHLORIDE [Concomitant]
  8. FLAVOXATE HYDROCHLORIDE [Concomitant]
  9. LOXOPROFEN SODIUM [Concomitant]
  10. IRSOGLADINE MALEATE [Concomitant]
  11. DICLOFENAC SODIUM [Concomitant]
  12. LOXOPROFEN SODIUM [Concomitant]

REACTIONS (16)
  - ANOREXIA [None]
  - BACK PAIN [None]
  - BENIGN PROSTATIC HYPERPLASIA [None]
  - BLADDER CANCER RECURRENT [None]
  - BLADDER STENOSIS [None]
  - DIZZINESS [None]
  - DRUG INEFFECTIVE [None]
  - DYSURIA [None]
  - FATIGUE [None]
  - HERPES ZOSTER [None]
  - HYPERTENSION [None]
  - HYPERTONIC BLADDER [None]
  - IRRITABILITY [None]
  - POLLAKIURIA [None]
  - URINARY BLADDER ATROPHY [None]
  - URINARY RETENTION [None]
